FAERS Safety Report 7466844-7 (Version None)
Quarter: 2011Q2

REPORT INFORMATION
  Report Type: 
  Country: None (occurrence: None)
  Receive Date: 20110509
  Receipt Date: 20100916
  Transmission Date: 20111010
  Serious: No
  Sender: FDA-Public Use
  Company Number: US-ALEXION-A201001176

PATIENT
  Sex: Female

DRUGS (3)
  1. VITAMIN B12                        /00056201/ [Concomitant]
  2. SOLIRIS [Suspect]
     Indication: PAROXYSMAL NOCTURNAL HAEMOGLOBINURIA
     Dosage: 900 MG, Q2W
     Route: 042
     Dates: start: 20090201
  3. FOLIC ACID [Concomitant]

REACTIONS (6)
  - DYSPNOEA [None]
  - THROAT TIGHTNESS [None]
  - WHITE BLOOD CELL COUNT DECREASED [None]
  - HAEMOGLOBINURIA [None]
  - PNEUMONIA [None]
  - CHEST PAIN [None]
